FAERS Safety Report 23551879 (Version 1)
Quarter: 2024Q1

REPORT INFORMATION
  Report Type: Spontaneous
  Country: ES (occurrence: ES)
  Receive Date: 20240222
  Receipt Date: 20240222
  Transmission Date: 20240409
  Serious: Yes (Other)
  Sender: FDA-Public Use
  Company Number: ES-AEMPS-1484399

PATIENT
  Age: 77 Year
  Sex: Female

DRUGS (2)
  1. EXEMESTANE [Suspect]
     Active Substance: EXEMESTANE
     Indication: Breast cancer
     Dosage: UNK
     Route: 048
     Dates: start: 20220831, end: 20230421
  2. EVEROLIMUS [Suspect]
     Active Substance: EVEROLIMUS
     Indication: Breast cancer
     Dosage: 10 MILLIGRAM, ONCE A DAY
     Route: 048
     Dates: start: 20220831, end: 20230421

REACTIONS (2)
  - Rash [Recovering/Resolving]
  - Lymphoedema [Recovering/Resolving]

NARRATIVE: CASE EVENT DATE: 20221129
